FAERS Safety Report 23065480 (Version 1)
Quarter: 2023Q4

REPORT INFORMATION
  Report Type: Spontaneous
  Country: US (occurrence: US)
  Receive Date: 20231013
  Receipt Date: 20231013
  Transmission Date: 20240110
  Serious: Yes (Other)
  Sender: FDA-Public Use
  Company Number: US-BRISTOL-MYERS SQUIBB COMPANY-2023-144169

PATIENT
  Age: 80 Year
  Sex: Male
  Weight: 114.3 kg

DRUGS (1)
  1. POMALYST [Suspect]
     Active Substance: POMALIDOMIDE
     Indication: Plasma cell myeloma
     Dosage: 21D (DAY) OF 28D (DAY) CYCLE
     Route: 048

REACTIONS (2)
  - Neuropathy peripheral [Unknown]
  - Laboratory test abnormal [Unknown]
